FAERS Safety Report 8431498-X (Version None)
Quarter: 2012Q2

REPORT INFORMATION
  Report Type: 
  Country: None (occurrence: None)
  Receive Date: 20120604
  Receipt Date: 20120523
  Transmission Date: 20120825
  Serious: Yes (Other)
  Sender: FDA-Public Use
  Company Number: 2012MA006496

PATIENT
  Age: 4 Year
  Sex: Female
  Weight: 18.1439 kg

DRUGS (1)
  1. IBUPROFEN [Suspect]
     Dosage: 15 ML;PO
     Route: 048

REACTIONS (1)
  - ACCIDENTAL DRUG INTAKE BY CHILD [None]
